FAERS Safety Report 5842295-3 (Version None)
Quarter: 2008Q3

REPORT INFORMATION
  Report Type: 
  Country: None (occurrence: None)
  Receive Date: 20080812
  Receipt Date: 20080731
  Transmission Date: 20090109
  Serious: Yes (Death)
  Sender: FDA-Public Use
  Company Number: TW-SANOFI-SYNTHELABO-A01200808941

PATIENT

DRUGS (1)
  1. PLAVIX [Suspect]
     Indication: ANTIPLATELET THERAPY
     Dosage: UNK
     Route: 048

REACTIONS (1)
  - RASH [None]
